FAERS Safety Report 16810105 (Version 1)
Quarter: 2019Q3

REPORT INFORMATION
  Report Type: Spontaneous
  Country: US (occurrence: US)
  Receive Date: 20190725
  Receipt Date: 20190725
  Transmission Date: 20191005
  Serious: No
  Sender: FDA-Public Use
  Company Number: None

PATIENT
  Age: 73 Year
  Sex: Male

DRUGS (1)
  1. TASIGNA [Suspect]
     Active Substance: NILOTINIB
     Route: 048
     Dates: start: 201903

REACTIONS (6)
  - Diarrhoea [None]
  - Body temperature increased [None]
  - Nausea [None]
  - Pain [None]
  - Headache [None]
  - Food poisoning [None]

NARRATIVE: CASE EVENT DATE: 20190724
